FAERS Safety Report 5653795-3 (Version None)
Quarter: 2008Q1

REPORT INFORMATION
  Report Type: 
  Country: None (occurrence: None)
  Receive Date: 20080206
  Receipt Date: 20071011
  Transmission Date: 20080703
  Serious: Yes (Life-Threatening, Hospitalization, Other)
  Sender: FDA-Public Use
  Company Number: US200708006397

PATIENT
  Age: 55 Year
  Sex: Female
  Weight: 105.2 kg

DRUGS (6)
  1. EVISTA [Suspect]
     Indication: OSTEOPOROSIS
     Dosage: 60 MG, ORAL
     Route: 048
     Dates: end: 20070801
  2. MAXZIDE [Concomitant]
  3. SYNTHROID [Concomitant]
  4. PAXIL [Concomitant]
  5. VYTORIN [Concomitant]
  6. LORAZEPAM [Concomitant]

REACTIONS (2)
  - EMBOLISM VENOUS [None]
  - PULMONARY EMBOLISM [None]
